FAERS Safety Report 14569575 (Version 3)
Quarter: 2018Q2

REPORT INFORMATION
  Report Type: Spontaneous
  Country: JP (occurrence: JP)
  Receive Date: 20180224
  Receipt Date: 20180417
  Transmission Date: 20180711
  Serious: Yes (Other)
  Sender: FDA-Public Use
  Company Number: JP-ROCHE-2077351

PATIENT
  Age: 43 Year
  Sex: Female

DRUGS (5)
  1. PREDONINE [Concomitant]
     Active Substance: PREDNISOLONE
     Dosage: DOSE REDUCED
     Route: 048
  2. NUCALA [Concomitant]
     Active Substance: MEPOLIZUMAB
     Route: 065
     Dates: start: 2017
  3. XOLAIR [Suspect]
     Active Substance: OMALIZUMAB
     Indication: ASTHMA
     Route: 058
     Dates: start: 2011
  4. PREDONINE [Concomitant]
     Active Substance: PREDNISOLONE
     Indication: ASTHMA
     Dosage: DOSE REDUCED, REDUCED TO 5 MG EVERY OTHER DAY
     Route: 048
  5. PREDONINE [Concomitant]
     Active Substance: PREDNISOLONE
     Dosage: EVERY OTHER DAY (225 MG/MONTH)
     Route: 048

REACTIONS (1)
  - Chronic eosinophilic rhinosinusitis [Unknown]
